FAERS Safety Report 5649277-5 (Version None)
Quarter: 2008Q1

REPORT INFORMATION
  Report Type: 
  Country: None (occurrence: None)
  Receive Date: 20080304
  Receipt Date: 20071220
  Transmission Date: 20080703
  Serious: No
  Sender: FDA-Public Use
  Company Number: US-BAYER-200810055NA

PATIENT
  Age: 43 Year
  Sex: Female
  Weight: 82 kg

DRUGS (1)
  1. MAGNEVIST [Suspect]
     Indication: NUCLEAR MAGNETIC RESONANCE IMAGING
     Dosage: UNIT DOSE: 18 ML
     Route: 042
     Dates: start: 20070802, end: 20070802

REACTIONS (3)
  - ARTHRALGIA [None]
  - CONTUSION [None]
  - PAIN IN EXTREMITY [None]
